FAERS Safety Report 6345422-7 (Version None)
Quarter: 2009Q3

REPORT INFORMATION
  Report Type: 
  Country: None (occurrence: None)
  Receive Date: 20090909
  Receipt Date: 20090903
  Transmission Date: 20100115
  Serious: No
  Sender: FDA-Public Use
  Company Number: US-JNJFOC-20090902213

PATIENT
  Sex: Female
  Weight: 99.79 kg

DRUGS (5)
  1. DURAGESIC-100 [Suspect]
     Indication: BACK PAIN
     Route: 062
  2. EPIPEN [Concomitant]
     Indication: ANAPHYLACTIC REACTION
     Route: 030
  3. DEXAMETHASONE [Concomitant]
     Indication: ANAPHYLACTIC REACTION
     Route: 048
  4. KENALOG [Concomitant]
     Indication: DERMATITIS
     Route: 061
  5. BENADRYL [Concomitant]
     Indication: MULTIPLE ALLERGIES
     Route: 048

REACTIONS (4)
  - DYSPHAGIA [None]
  - INAPPROPRIATE SCHEDULE OF DRUG ADMINISTRATION [None]
  - SWOLLEN TONGUE [None]
  - TOOTH DISORDER [None]
